FAERS Safety Report 8303521-4 (Version None)
Quarter: 2012Q2

REPORT INFORMATION
  Report Type: 
  Country: None (occurrence: None)
  Receive Date: 20120418
  Receipt Date: 20120405
  Transmission Date: 20120825
  Serious: Yes (Other)
  Sender: FDA-Public Use
  Company Number: DSA_56118_2012

PATIENT
  Age: 56 Year
  Sex: Male

DRUGS (13)
  1. ZOVIRAX [Suspect]
     Indication: PRODUCT USED FOR UNKNOWN INDICATION
     Dosage: (2250 MG QD INTRAVENOUS (NOT OTHERWISE SPECIFIED))
     Route: 042
  2. VANCOMYCIN HYDROCHLORIDE [Concomitant]
  3. VANCOMYCIN [Suspect]
     Indication: PRODUCT USED FOR UNKNOWN INDICATION
     Dosage: (DF)
  4. MIDAZOLAM [Concomitant]
  5. METHIMAZOLE [Suspect]
     Indication: PRODUCT USED FOR UNKNOWN INDICATION
     Dosage: (DF)
  6. CEFTRIAXONE [Suspect]
     Indication: PRODUCT USED FOR UNKNOWN INDICATION
     Dosage: (DF INTRAVENOUS (NOT OTHERWISE SPECIFIED))
     Route: 042
  7. LAMICTAL [Suspect]
     Indication: PRODUCT USED FOR UNKNOWN INDICATION
     Dosage: (DF ORAL)
     Route: 048
  8. CARBAMAZEPINE [Suspect]
     Indication: PRODUCT USED FOR UNKNOWN INDICATION
     Dosage: (DF)
  9. GLYCERIN /00200601/ [Concomitant]
  10. IODINE [Concomitant]
  11. VALPROATE SODIUM [Concomitant]
  12. EXTRA STRENGTH COLD MEDICATION NIGHTIME [Concomitant]
  13. METHYLPREDNISOLONE [Concomitant]

REACTIONS (7)
  - STATUS EPILEPTICUS [None]
  - PNEUMONIA [None]
  - RESPIRATORY DISORDER [None]
  - RENAL FAILURE ACUTE [None]
  - URINARY TRACT INFECTION [None]
  - RESPIRATORY ARREST [None]
  - DRUG HYPERSENSITIVITY [None]
